FAERS Safety Report 4691808-6 (Version None)
Quarter: 2005Q2

REPORT INFORMATION
  Report Type: 
  Country: None (occurrence: None)
  Receive Date: 20050616
  Receipt Date: 20050603
  Transmission Date: 20051028
  Serious: Yes (Life-Threatening, Hospitalization)
  Sender: FDA-Public Use
  Company Number: JP-JNJFOC-20050501681

PATIENT
  Age: 61 Year
  Sex: Female

DRUGS (12)
  1. DUROTEP [Suspect]
     Route: 062
  2. DUROTEP [Suspect]
     Route: 062
  3. DUROTEP [Suspect]
     Indication: CANCER PAIN
     Route: 062
  4. PACLITAXEL [Concomitant]
     Indication: BREAST CANCER
     Dosage: 150 MG/2W/DAY
  5. FUROSEMIDE [Concomitant]
     Indication: GASTRIC ULCER
     Route: 049
  6. ATORVASTATIN CALCIUM [Concomitant]
     Route: 049
  7. DOXIFLURIDINE [Concomitant]
     Indication: BREAST CANCER
     Route: 049
  8. PROCHLORPERAZINE MALEATE [Concomitant]
     Indication: NAUSEA
     Route: 049
  9. DOMPERIDONE [Concomitant]
     Indication: NAUSEA
     Route: 049
  10. FAMOTIDINE [Concomitant]
     Indication: GASTRIC ULCER
     Route: 049
  11. ECABET SODIUM [Concomitant]
     Indication: GASTRIC ULCER
     Route: 049
  12. MORPHINE HCL ELIXIR [Concomitant]
     Indication: CANCER PAIN
     Route: 049

REACTIONS (3)
  - NAUSEA [None]
  - RENAL FAILURE ACUTE [None]
  - URETERIC OBSTRUCTION [None]
